FAERS Safety Report 24565442 (Version 1)
Quarter: 2024Q4

REPORT INFORMATION
  Report Type: Spontaneous
  Country: QA (occurrence: QA)
  Receive Date: 20241030
  Receipt Date: 20241030
  Transmission Date: 20250114
  Serious: Yes (Other)
  Sender: RANBAXY
  Company Number: QA-SUN PHARMACEUTICAL INDUSTRIES LTD-2024R1-475911

PATIENT
  Age: 48 Year
  Sex: Male

DRUGS (4)
  1. CISPLATIN [Suspect]
     Active Substance: CISPLATIN
     Indication: Burkitt^s lymphoma
     Dosage: 3 CYCLES
     Route: 065
     Dates: start: 202012, end: 202101
  2. DEXAMETHASONE [Suspect]
     Active Substance: DEXAMETHASONE
     Indication: Burkitt^s lymphoma
     Dosage: 3 CYCLES
     Route: 065
     Dates: start: 202012, end: 202101
  3. CYTARABINE [Suspect]
     Active Substance: CYTARABINE
     Indication: Burkitt^s lymphoma
     Dosage: 3 CYCLES
     Route: 065
     Dates: start: 202012, end: 202101
  4. RITUXIMAB [Suspect]
     Active Substance: RITUXIMAB
     Indication: Burkitt^s lymphoma
     Dosage: 3 CYCLES
     Route: 065
     Dates: start: 202012, end: 202101

REACTIONS (2)
  - Disease progression [Unknown]
  - Treatment failure [Unknown]
